FAERS Safety Report 11232362 (Version 1)
Quarter: 2015Q3

REPORT INFORMATION
  Report Type: Spontaneous
  Country: US (occurrence: US)
  Receive Date: 20150701
  Receipt Date: 20150701
  Transmission Date: 20151125
  Serious: Yes (Other)
  Sender: FDA-Public Use
  Company Number: US-BAUSCH-BL-2015-016166

PATIENT
  Age: 62 Year
  Sex: Female

DRUGS (2)
  1. PURPOSE DUAL TREATMENT MOISTURE SUNSCREEN SPF 15 [Suspect]
     Active Substance: OCTINOXATE\OCTISALATE\OXYBENZONE
     Indication: THERAPEUTIC SKIN CARE TOPICAL
     Route: 061
  2. PURPOSE DUAL TREATMENT MOISTURE SUNSCREEN SPF 15 [Suspect]
     Active Substance: OCTINOXATE\OCTISALATE\OXYBENZONE
     Indication: DRY SKIN PROPHYLAXIS

REACTIONS (1)
  - Squamous cell carcinoma of skin [Recovered/Resolved]
